FAERS Safety Report 4980997-1 (Version None)
Quarter: 2006Q2

REPORT INFORMATION
  Report Type: 
  Country: None (occurrence: None)
  Receive Date: 20060418
  Receipt Date: 20060329
  Transmission Date: 20061013
  Serious: No
  Sender: FDA-Public Use
  Company Number: US200603007051

PATIENT
  Age: 65 Year
  Sex: Female

DRUGS (2)
  1. CYMBALTA [Suspect]
  2. DEPAKOTE [Concomitant]

REACTIONS (2)
  - AMMONIA INCREASED [None]
  - HEPATIC ENZYME INCREASED [None]
